FAERS Safety Report 6273029-9 (Version None)
Quarter: 2009Q3

REPORT INFORMATION
  Report Type: 
  Country: None (occurrence: None)
  Receive Date: 20090715
  Receipt Date: 20090715
  Transmission Date: 20100115
  Serious: Yes (Other)
  Sender: FDA-Public Use
  Company Number: None

PATIENT
  Sex: Female
  Weight: 71.2147 kg

DRUGS (2)
  1. CIPROFLOXACIN HCL [Suspect]
     Indication: ARTHRALGIA
     Dosage: 1 TABLET TWICE DAILY PO
     Route: 048
     Dates: start: 20090709, end: 20090712
  2. CIPRO HC [Suspect]
     Indication: EAR INFECTION
     Dosage: 3 DROPS PER EAR TWICE DAILY OTIC
     Route: 001
     Dates: start: 20090709, end: 20090710

REACTIONS (7)
  - ARTHRALGIA [None]
  - BLOOD GLUCOSE DECREASED [None]
  - MUSCULOSKELETAL PAIN [None]
  - NECK PAIN [None]
  - PAIN [None]
  - PAIN IN EXTREMITY [None]
  - URTICARIA [None]
